FAERS Safety Report 9576182 (Version 1)
Quarter: 2013Q4

REPORT INFORMATION
  Report Type: Spontaneous
  Country: US (occurrence: US)
  Receive Date: 20131001
  Receipt Date: 20131001
  Transmission Date: 20140711
  Serious: No
  Sender: FDA-Public Use
  Company Number: US-AMGEN-USASP2013001556

PATIENT
  Age: 15 Year
  Sex: Male
  Weight: 56.69 kg

DRUGS (2)
  1. ENBREL [Suspect]
     Indication: JUVENILE IDIOPATHIC ARTHRITIS
     Dosage: 50 MG, QWK
     Route: 058
  2. NAPROSYN                           /00256201/ [Concomitant]
     Dosage: 250 MG, UNK

REACTIONS (2)
  - Nasopharyngitis [Recovered/Resolved]
  - Sinusitis [Recovered/Resolved]
